FAERS Safety Report 9333188 (Version 2)
Quarter: 2013Q2

REPORT INFORMATION
  Report Type: Spontaneous
  Country: US (occurrence: None)
  Receive Date: 20130604
  Receipt Date: 20130618
  Transmission Date: 20140414
  Serious: Yes (Other)
  Sender: FDA-Public Use
  Company Number: 2013P1006502

PATIENT
  Age: 60 Year
  Sex: Male
  Weight: 114.31 kg

DRUGS (6)
  1. METHYLPREDNISOLONE [Suspect]
     Indication: TENDON DISORDER
     Route: 048
     Dates: start: 20130430, end: 20130504
  2. SHINGLES VACCINE [Suspect]
     Dates: start: 20130506
  3. ATENOLOL [Concomitant]
  4. MICARDIS [Concomitant]
  5. AMLODIPINE [Concomitant]
  6. BENAZEPRIL [Concomitant]

REACTIONS (3)
  - Blood pressure increased [None]
  - Palpitations [None]
  - Blood test abnormal [None]
